FAERS Safety Report 7408511-1 (Version None)
Quarter: 2011Q1

REPORT INFORMATION
  Report Type: 
  Country: None (occurrence: None)
  Receive Date: 20110301
  Receipt Date: 20101108
  Transmission Date: 20110831
  Serious: Yes (Other)
  Sender: FDA-Public Use
  Company Number: US-JNJFOC-20101104817

PATIENT
  Age: 63 Year
  Sex: Female
  Weight: 86.1834 kg

DRUGS (3)
  1. MOTRIN IB [Suspect]
     Indication: PRODUCT USED FOR UNKNOWN INDICATION
     Dosage: ORAL
     Route: 048
  2. SINGULAIR [Concomitant]
  3. ALBUTEROL [Concomitant]

REACTIONS (1)
  - ASTHMA [None]
